FAERS Safety Report 4871368-7 (Version None)
Quarter: 2006Q1

REPORT INFORMATION
  Report Type: 
  Country: None (occurrence: None)
  Receive Date: 20060103
  Receipt Date: 20050920
  Transmission Date: 20060701
  Serious: Yes (Hospitalization, Disabling)
  Sender: FDA-Public Use
  Company Number: US-MERCK-0509USA03119

PATIENT
  Age: 75 Year
  Sex: Female
  Weight: 57 kg

DRUGS (10)
  1. FOSAMAX [Concomitant]
     Indication: OSTEOPOROSIS
     Route: 065
     Dates: start: 20000517
  2. FOSAMAX [Concomitant]
     Indication: OSTEOPENIA
     Route: 065
     Dates: start: 20000517
  3. SYNTHROID [Concomitant]
     Indication: HYPOTHYROIDISM
     Route: 065
  4. PREMARIN [Concomitant]
     Indication: HOT FLUSH
     Route: 065
  5. PREMARIN [Concomitant]
     Indication: HORMONE REPLACEMENT THERAPY
     Route: 065
  6. ECOTRIN [Concomitant]
     Route: 065
     Dates: start: 20000517
  7. DARVOCET-N 100 [Concomitant]
     Route: 065
     Dates: start: 20030609
  8. VIOXX [Suspect]
     Indication: ARTHRITIS
     Route: 048
     Dates: start: 20020701, end: 20040930
  9. CELEBREX [Concomitant]
     Route: 065
     Dates: start: 20030510
  10. EXTRA STRENGTH TYLENOL [Concomitant]
     Route: 065
     Dates: start: 20001212

REACTIONS (7)
  - ABDOMINAL PAIN [None]
  - CEREBROVASCULAR ACCIDENT [None]
  - DEPRESSION [None]
  - FLANK PAIN [None]
  - GASTRIC DISORDER [None]
  - HYPERTENSION [None]
  - JOINT SWELLING [None]
